FAERS Safety Report 4642970-2 (Version None)
Quarter: 2005Q2

REPORT INFORMATION
  Report Type: 
  Country: None (occurrence: None)
  Receive Date: 20050421
  Receipt Date: 20050331
  Transmission Date: 20051028
  Serious: Yes (Hospitalization)
  Sender: FDA-Public Use
  Company Number: FR_040303720

PATIENT
  Age: 7 Year
  Sex: Male
  Weight: 21 kg

DRUGS (1)
  1. HUMATROPE [Suspect]
     Indication: GROWTH HORMONE DEFICIENCY
     Dosage: 0.6 MG/1 DAY
     Dates: start: 20010621, end: 20030821

REACTIONS (4)
  - ARACHNOID CYST [None]
  - AUTOIMMUNE THYROIDITIS [None]
  - GOITRE [None]
  - GROWTH RETARDATION [None]
